FAERS Safety Report 14140102 (Version 1)
Quarter: 2017Q4

REPORT INFORMATION
  Report Type: Report from Study
  Country: DE (occurrence: DE)
  Receive Date: 20171030
  Receipt Date: 20171030
  Transmission Date: 20180321
  Serious: Yes (Hospitalization)
  Sender: FDA-Public Use
  Company Number: DE-ROCHE-1381846

PATIENT
  Age: 45 Year
  Sex: Female
  Weight: 79 kg

DRUGS (10)
  1. XELODA [Suspect]
     Active Substance: CAPECITABINE
     Route: 048
     Dates: start: 20140123, end: 20140205
  2. XELODA [Suspect]
     Active Substance: CAPECITABINE
     Route: 048
     Dates: start: 20140213, end: 20140227
  3. XELODA [Suspect]
     Active Substance: CAPECITABINE
     Route: 048
     Dates: start: 20131205, end: 20131218
  4. XELODA [Suspect]
     Active Substance: CAPECITABINE
     Indication: BREAST CANCER
     Route: 048
     Dates: start: 20131024, end: 20131106
  5. XELODA [Suspect]
     Active Substance: CAPECITABINE
     Route: 048
     Dates: start: 20140102, end: 20140115
  6. XELODA [Suspect]
     Active Substance: CAPECITABINE
     Route: 048
     Dates: start: 20140321, end: 20140404
  7. DEXAMETHASON [Concomitant]
     Active Substance: DEXAMETHASONE
     Indication: PROPHYLAXIS
     Route: 048
     Dates: start: 20131001
  8. BEVACIZUMAB. [Suspect]
     Active Substance: BEVACIZUMAB
     Indication: BREAST CANCER
     Route: 042
     Dates: start: 20131024, end: 20131024
  9. BEVACIZUMAB. [Suspect]
     Active Substance: BEVACIZUMAB
     Indication: BREAST CANCER
     Route: 042
     Dates: start: 20140321, end: 20140321
  10. XELODA [Suspect]
     Active Substance: CAPECITABINE
     Route: 048
     Dates: start: 20131114, end: 20131127

REACTIONS (1)
  - Malignant neoplasm progression [Recovered/Resolved]

NARRATIVE: CASE EVENT DATE: 20140409
